FAERS Safety Report 19194411 (Version 2)
Quarter: 2021Q2

REPORT INFORMATION
  Report Type: Spontaneous
  Country: US (occurrence: US)
  Receive Date: 20210429
  Receipt Date: 20210518
  Transmission Date: 20210717
  Serious: Yes (Other)
  Sender: FDA-Public Use
  Company Number: US-PFIZER INC-2021432463

PATIENT
  Age: 57 Year
  Sex: Male
  Weight: 65.76 kg

DRUGS (2)
  1. INLYTA [Suspect]
     Active Substance: AXITINIB
     Indication: RENAL CELL CARCINOMA
     Dosage: 5 MG, CYCLIC (TWO TIMES A DAY ON DAYS 1?21 OF EVERY 21 DAY)
     Route: 048
     Dates: start: 202102
  2. TOZINAMERAN. [Suspect]
     Active Substance: TOZINAMERAN
     Indication: COVID-19 IMMUNISATION
     Dosage: UNKNOWN, SINGLE

REACTIONS (2)
  - Hepatitis [Unknown]
  - Blood test abnormal [Unknown]
